FAERS Safety Report 6640196-4 (Version None)
Quarter: 2010Q1

REPORT INFORMATION
  Report Type: 
  Country: None (occurrence: None)
  Receive Date: 20100318
  Receipt Date: 20100310
  Transmission Date: 20100710
  Serious: Yes (Death, Hospitalization)
  Sender: FDA-Public Use
  Company Number: NL-ROCHE-690022

PATIENT

DRUGS (6)
  1. CAPECITABINE [Suspect]
     Indication: GASTRIC CANCER
     Dosage: LAST DOSE PRIOR TO SAE: 28 FEBRUARY 2010.
     Route: 065
     Dates: start: 20100128
  2. EPIRUBICIN [Suspect]
     Indication: GASTRIC CANCER
     Dosage: LAST DOSE PRIOR TO SAE: 28 FEBRUARY 2010.
     Route: 065
     Dates: start: 20100128
  3. CISPLATIN [Suspect]
     Indication: GASTRIC CANCER
     Dosage: LAST DOSE PRIOR TO SAE: 28 FEBRUARY 2010
     Route: 065
     Dates: start: 20100128
  4. ATORVASTATIN CALCIUM [Concomitant]
  5. PANTOZOL [Concomitant]
  6. LISINOPRIL [Concomitant]

REACTIONS (4)
  - DIABETES MELLITUS [None]
  - DIARRHOEA [None]
  - NEUTROPENIA [None]
  - STOMATITIS [None]
